FAERS Safety Report 8813382 (Version 2)
Quarter: 2013Q1

REPORT INFORMATION
  Report Type: Spontaneous
  Country: US (occurrence: US)
  Receive Date: 20120927
  Receipt Date: 20130321
  Transmission Date: 20140127
  Serious: Yes (Other)
  Sender: FDA-Public Use
  Company Number: US-AMGEN-USASP2012045768

PATIENT
  Age: 84 Year
  Sex: Female

DRUGS (9)
  1. PROLIA [Suspect]
     Indication: OSTEOPOROSIS POSTMENOPAUSAL
     Dosage: UNK UNK, Q6MO
     Dates: start: 201109
  2. HYDROCHLOROTHIAZIDE [Concomitant]
  3. ALLERGY MEDICATION [Concomitant]
  4. ALEVE [Concomitant]
  5. CALCIUM [Concomitant]
  6. VITAMIN D /00107901/ [Concomitant]
  7. VITAMIN E                          /00110501/ [Concomitant]
  8. ACENAM [Concomitant]
  9. OSTEO BI-FLEX [Concomitant]

REACTIONS (26)
  - Cubital tunnel syndrome [Unknown]
  - Sensory loss [Not Recovered/Not Resolved]
  - Spinal fracture [Unknown]
  - Fall [Unknown]
  - Back pain [Not Recovered/Not Resolved]
  - Burning sensation [Not Recovered/Not Resolved]
  - Paraesthesia [Not Recovered/Not Resolved]
  - Gastrointestinal disorder [Not Recovered/Not Resolved]
  - Pain in jaw [Recovered/Resolved]
  - Myositis [Not Recovered/Not Resolved]
  - Abdominal discomfort [Unknown]
  - Tendon pain [Unknown]
  - Gait disturbance [Unknown]
  - Injection site pain [Unknown]
  - Muscular weakness [Unknown]
  - Tooth abscess [Unknown]
  - Abscess jaw [Unknown]
  - Hypersensitivity [Unknown]
  - Toothache [Recovered/Resolved]
  - Lacrimation increased [Recovered/Resolved]
  - Asthenia [Not Recovered/Not Resolved]
  - Local swelling [Recovered/Resolved]
  - Musculoskeletal pain [Not Recovered/Not Resolved]
  - Urticaria [Not Recovered/Not Resolved]
  - Rash [Not Recovered/Not Resolved]
  - Pain in extremity [Not Recovered/Not Resolved]
